FAERS Safety Report 19958706 (Version 3)
Quarter: 2021Q4

REPORT INFORMATION
  Report Type: Report from Study
  Country: US (occurrence: US)
  Receive Date: 20211015
  Receipt Date: 20211203
  Transmission Date: 20220303
  Serious: No
  Sender: FDA-Public Use
  Company Number: NVSC2021US235572

PATIENT
  Sex: Female

DRUGS (1)
  1. KISQALI [Suspect]
     Active Substance: RIBOCICLIB
     Indication: Product used for unknown indication
     Route: 048

REACTIONS (6)
  - Nausea [Unknown]
  - Bone pain [Unknown]
  - Asthenia [Unknown]
  - Heart rate increased [Unknown]
  - Gait disturbance [Unknown]
  - Intentional product use issue [Unknown]
